FAERS Safety Report 18280914 (Version 1)
Quarter: 2020Q3

REPORT INFORMATION
  Report Type: Spontaneous
  Country: US (occurrence: US)
  Receive Date: 20200918
  Receipt Date: 20200918
  Transmission Date: 20201103
  Serious: Yes (Other)
  Sender: FDA-Public Use
  Company Number: US-ALLERGAN-2025488US

PATIENT
  Age: 40 Year
  Sex: Male

DRUGS (1)
  1. SAPHRIS [Suspect]
     Active Substance: ASENAPINE MALEATE
     Indication: PRODUCT USED FOR UNKNOWN INDICATION

REACTIONS (19)
  - Euphoric mood [Unknown]
  - Distractibility [Unknown]
  - Feeling guilty [Unknown]
  - Depressed mood [Unknown]
  - Patient dissatisfaction with treatment [Unknown]
  - Anxiety [Unknown]
  - Neglect of personal appearance [Unknown]
  - Impulsive behaviour [Unknown]
  - Feelings of worthlessness [Unknown]
  - Suicidal ideation [Unknown]
  - High risk sexual behaviour [Unknown]
  - Self esteem decreased [Unknown]
  - Irritability [Unknown]
  - Delusion [Unknown]
  - Paranoia [Unknown]
  - Hallucination [Unknown]
  - Tachyphrenia [Unknown]
  - Asthenia [Unknown]
  - Loss of personal independence in daily activities [Unknown]
